FAERS Safety Report 14661693 (Version 1)
Quarter: 2018Q1

REPORT INFORMATION
  Report Type: Spontaneous
  Country: CA (occurrence: CA)
  Receive Date: 20180320
  Receipt Date: 20180320
  Transmission Date: 20180509
  Serious: Yes (Other)
  Sender: FDA-Public Use
  Company Number: CA-009507513-1803CAN006651

PATIENT
  Age: 6 Year
  Sex: Female

DRUGS (1)
  1. SINGULAIR [Suspect]
     Active Substance: MONTELUKAST SODIUM
     Dosage: 5 MG, DAILY
     Route: 048

REACTIONS (2)
  - Alice in wonderland syndrome [Recovered/Resolved]
  - Dysmetropsia [Recovered/Resolved]
